FAERS Safety Report 7452142-4 (Version None)
Quarter: 2011Q2

REPORT INFORMATION
  Report Type: 
  Country: None (occurrence: None)
  Receive Date: 20110502
  Receipt Date: 20110418
  Transmission Date: 20111010
  Serious: Yes (Hospitalization, Other)
  Sender: FDA-Public Use
  Company Number: US-CELGENEUS-163-21880-11042620

PATIENT
  Sex: Female
  Weight: 40.315 kg

DRUGS (18)
  1. CYPROHEPTADINE HCL [Concomitant]
     Route: 065
  2. HYDROCODONE BITARTRATE [Concomitant]
     Route: 065
  3. MULTIVITAMIN [Concomitant]
     Route: 065
  4. OSCAL [Concomitant]
     Route: 065
  5. TRIPLE ANTIBIOTIC OINTMENT [Concomitant]
     Route: 061
  6. WELCHOL [Concomitant]
     Route: 065
  7. POLYETHYLENE GLYCOL [Concomitant]
     Route: 065
  8. CENTRUM [Concomitant]
     Route: 065
  9. REVLIMID [Suspect]
     Indication: MULTIPLE MYELOMA
     Dosage: 25 MILLIGRAM
     Route: 048
     Dates: start: 20110121
  10. BAYER [Concomitant]
     Route: 065
  11. BENAZEPRIL HYDROCHLORIDE [Concomitant]
     Route: 065
  12. EVISTA [Concomitant]
     Route: 065
  13. GARLIC [Concomitant]
     Route: 048
  14. VITAMIN D [Concomitant]
     Route: 065
  15. LEVOTHYROXINE [Concomitant]
     Route: 065
  16. PROCTOZONE [Concomitant]
     Route: 065
  17. MULTIPLE VITAMIN [Concomitant]
     Route: 065
  18. MEGACE [Concomitant]
     Route: 065

REACTIONS (3)
  - DYSPHAGIA [None]
  - INTESTINAL OBSTRUCTION [None]
  - ABDOMINAL PAIN UPPER [None]
